FAERS Safety Report 14379170 (Version 3)
Quarter: 2018Q1

REPORT INFORMATION
  Report Type: Spontaneous
  Country: JP (occurrence: JP)
  Receive Date: 20180112
  Receipt Date: 20180205
  Transmission Date: 20180509
  Serious: Yes (Other)
  Sender: FDA-Public Use
  Company Number: JP-CIPLA LTD.-2018JP00432

PATIENT

DRUGS (6)
  1. CARBOPLATIN. [Suspect]
     Active Substance: CARBOPLATIN
     Dosage: UNK, SECOND LINE
     Route: 065
  2. CARBOPLATIN. [Suspect]
     Active Substance: CARBOPLATIN
     Dosage: AUC 6, THIRD LINE
     Route: 065
  3. CARBOPLATIN. [Suspect]
     Active Substance: CARBOPLATIN
     Indication: SMALL CELL LUNG CANCER
     Dosage: UNK, FIRST LINE
     Route: 065
  4. ETOPOSIDE. [Suspect]
     Active Substance: ETOPOSIDE
     Dosage: UNK, SECOND LINE
     Route: 065
  5. HUMAN ALBUMIN/PACLITAXEL [Suspect]
     Active Substance: PACLITAXEL
     Indication: SMALL CELL LUNG CANCER
     Dosage: 100 MG/M2, WEEKLY FOR 3 WEEKS IN A 4-WEEK CYCLE
     Route: 065
  6. ETOPOSIDE. [Suspect]
     Active Substance: ETOPOSIDE
     Indication: SMALL CELL LUNG CANCER
     Dosage: UNK, FIRST LINE
     Route: 065

REACTIONS (10)
  - Small cell lung cancer [Unknown]
  - Anaemia [Unknown]
  - Fatigue [Unknown]
  - Dysgeusia [Unknown]
  - Neuropathy peripheral [Unknown]
  - Leukopenia [Unknown]
  - Decreased appetite [Unknown]
  - Thrombocytopenia [Unknown]
  - Constipation [Unknown]
  - Neutropenia [Recovered/Resolved]
